FAERS Safety Report 8790271 (Version 3)
Quarter: 2013Q1

REPORT INFORMATION
  Report Type: Spontaneous
  Country: US (occurrence: US)
  Receive Date: 20120917
  Receipt Date: 20130117
  Transmission Date: 20140127
  Serious: Yes (Death, Hospitalization, Other)
  Sender: FDA-Public Use
  Company Number: US-JNJFOC-20120905045

PATIENT
  Sex: Male

DRUGS (8)
  1. REMICADE [Suspect]
     Indication: CROHN^S DISEASE
     Route: 042
     Dates: end: 200808
  2. REMICADE [Suspect]
     Indication: CROHN^S DISEASE
     Dosage: START DATE:POSSIBLY 2007 OR 2008
     Route: 042
     Dates: end: 2010
  3. REMICADE [Suspect]
     Indication: CROHN^S DISEASE
     Route: 042
     Dates: start: 200802, end: 200910
  4. REMICADE [Suspect]
     Indication: CROHN^S DISEASE
     Route: 042
     Dates: start: 2007
  5. CIMZIA [Suspect]
     Indication: CROHN^S DISEASE
     Route: 065
     Dates: start: 200910
  6. 6MP [Concomitant]
     Indication: CROHN^S DISEASE
     Route: 065
  7. GLUCOSAMINE / CHONDROITIN [Concomitant]
     Indication: ARTHROPATHY
     Route: 065
  8. CHOLESTYRAMINE [Concomitant]
     Route: 065

REACTIONS (3)
  - Metastatic malignant melanoma [Fatal]
  - Abscess [Unknown]
  - Crohn^s disease [Unknown]
